FAERS Safety Report 23353174 (Version 1)
Quarter: 2023Q4

REPORT INFORMATION
  Report Type: Spontaneous
  Country: US (occurrence: US)
  Receive Date: 20231230
  Receipt Date: 20231230
  Transmission Date: 20240110
  Serious: No
  Sender: FDA-Public Use
  Company Number: US-INSUD PHARMA-2312US09256

PATIENT

DRUGS (1)
  1. SLYND [Suspect]
     Active Substance: DROSPIRENONE
     Indication: Oral contraception
     Dosage: UNKNOWN
     Route: 048

REACTIONS (3)
  - Amenorrhoea [Not Recovered/Not Resolved]
  - Premenstrual syndrome [Recovered/Resolved]
  - Hypomenorrhoea [Unknown]

NARRATIVE: CASE EVENT DATE: 20231201
